FAERS Safety Report 6248530-4 (Version None)
Quarter: 2009Q2

REPORT INFORMATION
  Report Type: 
  Country: None (occurrence: None)
  Receive Date: 20090624
  Receipt Date: 20090617
  Transmission Date: 20091009
  Serious: Yes (Other)
  Sender: FDA-Public Use
  Company Number: A-US2009-25407

PATIENT
  Age: 79 Year
  Sex: Female

DRUGS (14)
  1. TRACLEER [Suspect]
     Indication: PULMONARY ARTERIAL HYPERTENSION
     Dosage: 125 MG, BID, ORAL, 62.5 MG, BID, ORAL, 62.5 MG, BID, ORAL
     Route: 048
     Dates: start: 20090325, end: 20090423
  2. TRACLEER [Suspect]
     Indication: PULMONARY ARTERIAL HYPERTENSION
     Dosage: 125 MG, BID, ORAL, 62.5 MG, BID, ORAL, 62.5 MG, BID, ORAL
     Route: 048
     Dates: start: 20090424, end: 20090501
  3. TRACLEER [Suspect]
     Indication: PULMONARY ARTERIAL HYPERTENSION
     Dosage: 125 MG, BID, ORAL, 62.5 MG, BID, ORAL, 62.5 MG, BID, ORAL
     Route: 048
     Dates: end: 20090605
  4. REVATIO [Concomitant]
  5. COREG [Concomitant]
  6. SPIRONOLACTONE [Concomitant]
  7. NORVASC [Concomitant]
  8. SENSIPAR [Concomitant]
  9. HYDREA [Concomitant]
  10. CATAPRES [Concomitant]
  11. LASIX [Concomitant]
  12. ASPIRIN [Concomitant]
  13. ALLOPURINOL [Concomitant]
  14. NEXIUM (ESOMEPRAZOLE SODIUM) [Concomitant]

REACTIONS (8)
  - CONFUSIONAL STATE [None]
  - FATIGUE [None]
  - INSOMNIA [None]
  - LETHARGY [None]
  - OEDEMA PERIPHERAL [None]
  - PAIN [None]
  - SKIN ULCER [None]
  - SOMNOLENCE [None]
